FAERS Safety Report 8772012 (Version 4)
Quarter: 2013Q2

REPORT INFORMATION
  Report Type: Other
  Country: IE (occurrence: IE)
  Receive Date: 20120906
  Receipt Date: 20130402
  Transmission Date: 20140414
  Serious: Yes (Other)
  Sender: FDA-Public Use
  Company Number: IE-SHIRE-ALL1-2012-04178

PATIENT
  Age: 5 Year
  Sex: Male
  Weight: 25 kg

DRUGS (6)
  1. ELAPRASE [Suspect]
     Indication: MUCOPOLYSACCHARIDOSIS II
     Dosage: 12 MG, 1X/WEEK
     Route: 041
     Dates: start: 20080710
  2. EMLA                               /00675501/ [Concomitant]
     Indication: PRODUCT USED FOR UNKNOWN INDICATION
     Dosage: UNK, UNKNOWN
     Route: 061
  3. PARACETAMOL [Concomitant]
     Indication: PREMEDICATION
     Dosage: UNK, 1X/WEEK (ONE HOUR PRIOR TO INFUSION)
     Route: 048
  4. ZIRTEK [Concomitant]
     Indication: PREMEDICATION
     Dosage: UNK, 1X/WEEK (ONE HOUR PRIOR TO INFUSION)
     Route: 048
  5. PREDNISOLONE [Concomitant]
     Indication: PREMEDICATION
     Dosage: 20 MG, 1X/WEEK (ONE HOUR PRIOR TO INFUSION)
     Route: 048
  6. PREDNISOLONE [Concomitant]
     Dosage: 15 MG, 1X/WEEK (12 HOURS PRIOR TO INFUSION)
     Route: 048

REACTIONS (7)
  - Hypotonia [Recovered/Resolved]
  - Fatigue [Recovered/Resolved]
  - Body temperature decreased [Recovered/Resolved]
  - Agitation [Recovered/Resolved]
  - Rash macular [Recovered/Resolved]
  - Infusion related reaction [Recovered/Resolved]
  - Abdominal pain [Recovered/Resolved]
